FAERS Safety Report 8254757-2 (Version None)
Quarter: 2012Q1

REPORT INFORMATION
  Report Type: 
  Country: None (occurrence: None)
  Receive Date: 20120322
  Receipt Date: 20111220
  Transmission Date: 20120608
  Serious: Yes (Hospitalization)
  Sender: FDA-Public Use
  Company Number: UTC-013727

PATIENT
  Age: 71 Year
  Sex: Male
  Weight: 75.9 kg

DRUGS (3)
  1. TYVASO [Suspect]
     Indication: PULMONARY ARTERIAL HYPERTENSION
     Dosage: 216 MCG (54 MCG, 4 IN 1 D), INHALATION
     Route: 055
     Dates: start: 20101201
  2. DILTIAZEM [Concomitant]
  3. REVATIO [Concomitant]

REACTIONS (2)
  - ATRIAL FLUTTER [None]
  - DYSPNOEA [None]
